FAERS Safety Report 17585975 (Version 1)
Quarter: 2020Q1

REPORT INFORMATION
  Report Type: Spontaneous
  Country: FR (occurrence: FR)
  Receive Date: 20200326
  Receipt Date: 20200326
  Transmission Date: 20200409
  Serious: Yes (Hospitalization)
  Sender: FDA-Public Use
  Company Number: FR-MYLANLABS-2020M1031707

PATIENT
  Age: 47 Year
  Sex: Female
  Weight: 69 kg

DRUGS (5)
  1. PARACETAMOL [Concomitant]
     Active Substance: ACETAMINOPHEN
     Dosage: UNK
  2. CONTRAMAL [Concomitant]
     Active Substance: TRAMADOL HYDROCHLORIDE
     Dosage: UNK
  3. ONDANSETRON [Concomitant]
     Active Substance: ONDANSETRON
     Dosage: UNK
  4. NEFOPAM [Concomitant]
     Active Substance: NEFOPAM
     Dosage: UNK
  5. ACICLOVIR MYLAN [Suspect]
     Active Substance: ACYCLOVIR
     Indication: MENINGITIS HERPES
     Dosage: 4500 MILLIGRAM, QD
     Route: 041
     Dates: start: 20200127, end: 20200127

REACTIONS (3)
  - Extravasation [Recovered/Resolved]
  - Injection site necrosis [Recovering/Resolving]
  - Injection site vesicles [Recovering/Resolving]

NARRATIVE: CASE EVENT DATE: 20200127
